FAERS Safety Report 6123391-2 (Version None)
Quarter: 2009Q1

REPORT INFORMATION
  Report Type: 
  Country: None (occurrence: None)
  Receive Date: 20090318
  Receipt Date: 20090310
  Transmission Date: 20090719
  Serious: Yes (Death, Hospitalization, Other)
  Sender: FDA-Public Use
  Company Number: CA-AMGEN-US178658

PATIENT
  Sex: Female
  Weight: 47.7 kg

DRUGS (5)
  1. ENBREL [Suspect]
     Indication: RHEUMATOID ARTHRITIS
     Route: 058
     Dates: start: 20040214
  2. CELEBREX [Concomitant]
     Route: 048
  3. FUROSEMIDE [Concomitant]
  4. EFFEXOR [Concomitant]
  5. TRACLEER [Concomitant]

REACTIONS (18)
  - ANAEMIA [None]
  - ANEURYSM RUPTURED [None]
  - BONE MARROW FAILURE [None]
  - CENTRAL LINE INFECTION [None]
  - CONVULSION [None]
  - DEATH [None]
  - HEPATOMEGALY [None]
  - MALNUTRITION [None]
  - MULTI-ORGAN FAILURE [None]
  - PULMONARY ARTERIAL HYPERTENSION [None]
  - RENAL FAILURE ACUTE [None]
  - RENAL TUBULAR NECROSIS [None]
  - RHEUMATOID ARTHRITIS [None]
  - RIGHT VENTRICULAR FAILURE [None]
  - SPLENOMEGALY [None]
  - STAPHYLOCOCCAL SEPSIS [None]
  - SUBARACHNOID HAEMORRHAGE [None]
  - THROMBOCYTOPENIA [None]
